FAERS Safety Report 24714400 (Version 1)
Quarter: 2024Q4

REPORT INFORMATION
  Report Type: Spontaneous
  Country: US (occurrence: US)
  Receive Date: 20241209
  Receipt Date: 20241209
  Transmission Date: 20250114
  Serious: No
  Sender: NEUROCRINE BIOSCIENCES
  Company Number: US-NEUROCRINE BIOSCIENCES INC.-2024NBI12116

PATIENT
  Age: 39 Year
  Sex: Male

DRUGS (1)
  1. INGREZZA [Suspect]
     Active Substance: VALBENAZINE
     Indication: Huntington^s disease
     Dosage: 40 MILLIGRAM, QD
     Route: 065
     Dates: start: 20241105

REACTIONS (3)
  - Abnormal behaviour [Unknown]
  - Mood altered [Unknown]
  - Restlessness [Unknown]
